FAERS Safety Report 18292577 (Version 6)
Quarter: 2022Q1

REPORT INFORMATION
  Report Type: Spontaneous
  Country: CA (occurrence: CA)
  Receive Date: 20200922
  Receipt Date: 20220325
  Transmission Date: 20220423
  Serious: Yes (Other)
  Sender: FDA-Public Use
  Company Number: None

PATIENT
  Age: 79 Year
  Sex: Male

DRUGS (2)
  1. ATENOLOL [Suspect]
     Active Substance: ATENOLOL
     Indication: Hypertension
     Route: 048
  2. OCTREOTIDE ACETATE [Suspect]
     Active Substance: OCTREOTIDE ACETATE
     Indication: Acromegaly
     Route: 030

REACTIONS (33)
  - Frequent bowel movements [Unknown]
  - Heart rate decreased [Unknown]
  - Peripheral coldness [Unknown]
  - Vision blurred [Unknown]
  - Blood growth hormone decreased [Unknown]
  - Blood pressure systolic increased [Unknown]
  - Body temperature fluctuation [Unknown]
  - Chills [Unknown]
  - Epistaxis [Unknown]
  - Nephrolithiasis [Unknown]
  - Weight decreased [Unknown]
  - Dementia Alzheimer^s type [Unknown]
  - Haemorrhoids [Unknown]
  - Peripheral swelling [Unknown]
  - Rectal haemorrhage [Unknown]
  - Bradycardia [Unknown]
  - Pulse abnormal [Recovered/Resolved]
  - Abdominal pain [Recovered/Resolved]
  - Aggression [Recovered/Resolved]
  - Amnesia [Recovered/Resolved]
  - Cognitive disorder [Unknown]
  - Blood pressure increased [Recovered/Resolved]
  - Confusional state [Recovered/Resolved]
  - Agitation [Recovered/Resolved]
  - Dementia [Recovered/Resolved]
  - Disorientation [Recovered/Resolved]
  - Erythema [Unknown]
  - Flank pain [Recovered/Resolved]
  - Lethargy [Recovered/Resolved]
  - Restlessness [Recovered/Resolved]
  - Urinary incontinence [Recovered/Resolved]
  - Heart rate increased [Recovered/Resolved]
  - Constipation [Recovered/Resolved]

NARRATIVE: CASE EVENT DATE: 20180201
